FAERS Safety Report 23396249 (Version 2)
Quarter: 2024Q1

REPORT INFORMATION
  Report Type: Spontaneous
  Country: IT (occurrence: IT)
  Receive Date: 20240112
  Receipt Date: 20240113
  Transmission Date: 20240409
  Serious: Yes (Other)
  Sender: FDA-Public Use
  Company Number: IT-SUN PHARMACEUTICAL INDUSTRIES LTD-2023RR-426755

PATIENT
  Age: 55 Year
  Sex: Male

DRUGS (4)
  1. OXALIPLATIN [Suspect]
     Active Substance: OXALIPLATIN
     Indication: Adenocarcinoma gastric
     Dosage: 162 MILLIGRAM, UNK
     Route: 040
     Dates: start: 20221114, end: 20221114
  2. FLUOROURACIL [Suspect]
     Active Substance: FLUOROURACIL
     Indication: Adenocarcinoma gastric
     Dosage: 382 MILLIGRAM, UNK
     Route: 040
     Dates: start: 20221114, end: 20221114
  3. FLUOROURACIL [Suspect]
     Active Substance: FLUOROURACIL
     Dosage: 3438 MILIGRAM, UNK
     Route: 040
     Dates: start: 20221114, end: 20221114
  4. ACIDO LEVO FOLINICO [Concomitant]
     Indication: Product used for unknown indication
     Dosage: 286 MILLIGRAM, UNK
     Route: 065

REACTIONS (3)
  - Hyperkalaemia [Recovering/Resolving]
  - Neutropenia [Recovering/Resolving]
  - Off label use [Recovering/Resolving]

NARRATIVE: CASE EVENT DATE: 20221114
